FAERS Safety Report 22314986 (Version 3)
Quarter: 2023Q2

REPORT INFORMATION
  Report Type: Spontaneous
  Country: NG (occurrence: NG)
  Receive Date: 20230512
  Receipt Date: 20230531
  Transmission Date: 20230721
  Serious: Yes (Life-Threatening, Hospitalization, Other)
  Sender: FDA-Public Use
  Company Number: NG-SA-2023SA146639

PATIENT
  Age: 48 Year
  Sex: Female

DRUGS (8)
  1. CLOPIDOGREL BISULFATE [Suspect]
     Active Substance: CLOPIDOGREL BISULFATE
     Indication: Antiplatelet therapy
     Dosage: 75 MG, QD
     Route: 048
  2. RAMIPRIL [Concomitant]
     Active Substance: RAMIPRIL
     Dosage: UNK
  3. HYDROCHLOROTHIAZIDE [Concomitant]
     Active Substance: HYDROCHLOROTHIAZIDE
     Dosage: UNK
  4. AMLODIPINE [Concomitant]
     Active Substance: AMLODIPINE BESYLATE
     Dosage: UNK
  5. FUROSEMIDE [Concomitant]
     Active Substance: FUROSEMIDE
     Dosage: UNK
  6. ALLOPURINOL [Concomitant]
     Active Substance: ALLOPURINOL
     Dosage: UNK
  7. CALCIUM CARBONATE [Concomitant]
     Active Substance: CALCIUM CARBONATE
     Dosage: UNK
  8. WHOLE BLOOD [Concomitant]
     Active Substance: WHOLE BLOOD
     Dosage: 3 U

REACTIONS (25)
  - Uraemic encephalopathy [Recovering/Resolving]
  - Somnolence [Recovering/Resolving]
  - Speech disorder [Recovering/Resolving]
  - Decreased appetite [Recovering/Resolving]
  - Loss of consciousness [Recovered/Resolved]
  - Mental disorder [Recovering/Resolving]
  - Hypertensive nephropathy [Not Recovered/Not Resolved]
  - Oliguria [Not Recovered/Not Resolved]
  - Azotaemia [Not Recovered/Not Resolved]
  - Uraemic gastropathy [Recovering/Resolving]
  - Hiccups [Recovering/Resolving]
  - Vomiting [Recovering/Resolving]
  - Thrombotic thrombocytopenic purpura [Recovering/Resolving]
  - Pyrexia [Recovering/Resolving]
  - Dyspnoea [Recovering/Resolving]
  - Peripheral swelling [Recovering/Resolving]
  - Fatigue [Recovering/Resolving]
  - Injection site haemorrhage [Recovering/Resolving]
  - Ecchymosis [Recovering/Resolving]
  - Swelling face [Recovering/Resolving]
  - Oedema peripheral [Recovering/Resolving]
  - Pallor [Recovering/Resolving]
  - Purpura [Recovering/Resolving]
  - Haemolysis [Recovered/Resolved]
  - Thrombocytopenia [Recovered/Resolved]
